FAERS Safety Report 9234063 (Version 1)
Quarter: 2013Q2

REPORT INFORMATION
  Report Type: Spontaneous
  Country: US (occurrence: US)
  Receive Date: 20130416
  Receipt Date: 20130416
  Transmission Date: 20140414
  Serious: No
  Sender: FDA-Public Use
  Company Number: US-BAYER-2013-044945

PATIENT
  Age: 21 Year
  Sex: Female
  Weight: 86.17 kg

DRUGS (5)
  1. ALEVE GELCAPS [Suspect]
     Indication: HEADACHE
     Dosage: 1 DF, ONCE
     Route: 048
     Dates: start: 20130331, end: 20130331
  2. PREDNISONE [Concomitant]
  3. LEVOTHYROXINE [Concomitant]
  4. RECLIPSEN [Concomitant]
  5. GARNIER SKIN CREAM [Concomitant]

REACTIONS (2)
  - Rash [Not Recovered/Not Resolved]
  - Rash [Not Recovered/Not Resolved]
